FAERS Safety Report 23804834 (Version 2)
Quarter: 2024Q2

REPORT INFORMATION
  Report Type: Spontaneous
  Country: US (occurrence: US)
  Receive Date: 20240501
  Receipt Date: 20240522
  Transmission Date: 20240716
  Serious: No
  Sender: FDA-Public Use
  Company Number: US-BAUSCHBL-2024BNL025994

PATIENT
  Age: 74 Year
  Sex: Female
  Weight: 63.5 kg

DRUGS (6)
  1. LUMIFY [Suspect]
     Active Substance: BRIMONIDINE TARTRATE
     Indication: Ocular hyperaemia
     Dosage: SOMETIMES ONCE IN THE EVENING AT LEAST 12 HOURS
     Route: 047
     Dates: start: 202310, end: 202404
  2. LUMIFY [Suspect]
     Active Substance: BRIMONIDINE TARTRATE
     Indication: Asthenopia
  3. PANTOPRAZOLE [Concomitant]
     Active Substance: PANTOPRAZOLE
     Indication: Product used for unknown indication
     Route: 065
  4. ATENOLOL [Concomitant]
     Active Substance: ATENOLOL
     Indication: Product used for unknown indication
     Route: 065
  5. HYDROCHLOROTHIAZIDE [Concomitant]
     Active Substance: HYDROCHLOROTHIAZIDE
     Indication: Product used for unknown indication
     Route: 065
  6. XANAX [Concomitant]
     Active Substance: ALPRAZOLAM
     Indication: Product used for unknown indication
     Route: 065

REACTIONS (3)
  - Tachycardia [Not Recovered/Not Resolved]
  - Ventricular extrasystoles [Not Recovered/Not Resolved]
  - Inappropriate schedule of product administration [Unknown]

NARRATIVE: CASE EVENT DATE: 20231201
